FAERS Safety Report 9780345 (Version 2)
Quarter: 2016Q2

REPORT INFORMATION
  Report Type: Report from Study
  Country: US (occurrence: US)
  Receive Date: 20131224
  Receipt Date: 20160512
  Transmission Date: 20160815
  Serious: Yes (Death)
  Sender: FDA-Public Use
  Company Number: US-ROCHE-1324356

PATIENT
  Sex: Male
  Weight: 87.85 kg

DRUGS (22)
  1. DECADRON [Concomitant]
     Active Substance: DEXAMETHASONE
     Dosage: 29/OCT/2012
     Route: 042
  2. TYLENOL [Concomitant]
     Active Substance: ACETAMINOPHEN
     Dosage: 14/FEB/2013
     Route: 048
  3. BENADRYL [Concomitant]
     Active Substance: DIPHENHYDRAMINE HYDROCHLORIDE
     Dosage: 4/APR/2013
     Route: 042
  4. GABAPENTIN. [Concomitant]
     Active Substance: GABAPENTIN
     Dosage: 01/JAN/2013
     Route: 048
  5. LYRICA [Concomitant]
     Active Substance: PREGABALIN
     Dosage: 14/FEB/2013
     Route: 048
  6. NEUPOGEN [Concomitant]
     Active Substance: FILGRASTIM
     Dosage: 27/FEB/2013
     Route: 065
  7. PEPCID [Concomitant]
     Active Substance: FAMOTIDINE
     Route: 042
  8. ALEVE [Concomitant]
     Active Substance: NAPROXEN SODIUM
     Route: 065
  9. DEXTROMETHORPHAN [Concomitant]
     Active Substance: DEXTROMETHORPHAN
     Route: 042
  10. TRAMADOL. [Concomitant]
     Active Substance: TRAMADOL
     Dosage: 50 MG TID PO
     Route: 048
  11. ALEVE [Concomitant]
     Active Substance: NAPROXEN SODIUM
     Indication: ARTHRALGIA
     Dosage: 25/SEP/2012
     Route: 048
  12. AVASTIN [Suspect]
     Active Substance: BEVACIZUMAB
     Indication: MALIGNANT MELANOMA
     Dosage: 21/SEP/2012,  4/OCT/2012, 29/OCT/2012, 12/NOV/2012, 28/NOV/2012, 10/DEC/2012, 20/DEC/2012,  2/JAN/20
     Route: 042
  13. AVASTIN [Suspect]
     Active Substance: BEVACIZUMAB
     Indication: METASTASES TO LYMPH NODES
  14. NORMAL SALINE [Concomitant]
     Active Substance: SODIUM CHLORIDE
     Route: 042
  15. ACETAMINOPHEN. [Concomitant]
     Active Substance: ACETAMINOPHEN
     Dosage: 4/APR/2013
     Route: 048
  16. ZOFRAN [Concomitant]
     Active Substance: ONDANSETRON HYDROCHLORIDE
     Dosage: 14/FEB/2013
     Route: 042
  17. ABRAXANE [Concomitant]
     Active Substance: PACLITAXEL
     Dosage: 14/MAR/2013
     Route: 042
  18. VORINOSTAT [Concomitant]
     Active Substance: VORINOSTAT
     Route: 065
  19. SPRYCEL [Concomitant]
     Active Substance: DASATINIB
     Dosage: 14/FEB/2013
     Route: 048
  20. AFINITOR [Concomitant]
     Active Substance: EVEROLIMUS
     Route: 048
  21. PACLITAXEL. [Concomitant]
     Active Substance: PACLITAXEL
     Route: 042
  22. TRAMADOL. [Concomitant]
     Active Substance: TRAMADOL
     Dosage: 02/MAY/2013
     Route: 048

REACTIONS (13)
  - Arthralgia [Unknown]
  - Dyspnoea exertional [Unknown]
  - Hypoaesthesia [Unknown]
  - Sinus headache [Unknown]
  - Hypertension [Unknown]
  - Fall [Unknown]
  - Vision blurred [Unknown]
  - Diarrhoea [Unknown]
  - Death [Fatal]
  - Neuropathy peripheral [Unknown]
  - Dizziness [Unknown]
  - Musculoskeletal pain [Unknown]
  - Constipation [Unknown]
